FAERS Safety Report 8254888-7 (Version None)
Quarter: 2012Q2

REPORT INFORMATION
  Report Type: 
  Country: None (occurrence: None)
  Receive Date: 20120403
  Receipt Date: 20120327
  Transmission Date: 20120825
  Serious: No
  Sender: FDA-Public Use
  Company Number: US-PFIZER INC-2012079413

PATIENT
  Sex: Male

DRUGS (2)
  1. VFEND [Suspect]
     Indication: ASPERGILLOSIS
  2. VFEND [Suspect]
     Indication: LUNG TRANSPLANT
     Dosage: 200 MG, DAILY
     Dates: start: 20110411

REACTIONS (2)
  - COUGH [None]
  - OROPHARYNGEAL PAIN [None]
